FAERS Safety Report 8099871-X (Version None)
Quarter: 2012Q1

REPORT INFORMATION
  Report Type: 
  Country: None (occurrence: None)
  Receive Date: 20120129
  Receipt Date: 20111009
  Transmission Date: 20120608
  Serious: No
  Sender: FDA-Public Use
  Company Number: US-ABBOTT-11P-163-0862819-00

PATIENT
  Age: 59 Year
  Sex: Male

DRUGS (12)
  1. LIPITOR [Concomitant]
     Indication: BLOOD CHOLESTEROL
     Dosage: DAILY FOR 7 YEARS
  2. HUMIRA [Suspect]
     Indication: RHEUMATOID ARTHRITIS
     Dates: start: 20110923
  3. ASPIRIN [Concomitant]
     Indication: CARDIAC DISORDER
     Dosage: DAILY FOR 11 YEARS
  4. SULFAZINE [Concomitant]
     Indication: ARTHRALGIA
     Dosage: FOR 2 YEARS
  5. ALLOPURINOL [Concomitant]
     Indication: GOUT
     Dosage: DAILY FOR 10 YEARS
  6. FOLIC ACID [Concomitant]
     Indication: PRODUCT USED FOR UNKNOWN INDICATION
     Dosage: DAILY FOR 2 YEARS
  7. VITAMIN D [Concomitant]
     Indication: PRODUCT USED FOR UNKNOWN INDICATION
     Dosage: DAILY FOR 3 YEARS
  8. LOSARTAN POTASSIUM [Concomitant]
     Indication: HYPERTENSION
     Dosage: DAILY
  9. METOPROLOL TARTRATE [Concomitant]
     Indication: CARDIAC DISORDER
     Dates: start: 20040101
  10. METHOTREXATE [Concomitant]
     Indication: PRODUCT USED FOR UNKNOWN INDICATION
     Dosage: 1CC PER WEEK FOR 2 YEARS
  11. LEVOTHYROXINE SODIUM [Concomitant]
     Indication: HYPOTHYROIDISM
     Dosage: FOR 15 YEARS
  12. FISH OIL [Concomitant]
     Indication: PRODUCT USED FOR UNKNOWN INDICATION

REACTIONS (4)
  - ERYTHEMA [None]
  - ACNE [None]
  - PAIN [None]
  - PRURITUS [None]
